FAERS Safety Report 15597934 (Version 1)
Quarter: 2018Q4

REPORT INFORMATION
  Report Type: Spontaneous
  Country: US (occurrence: US)
  Receive Date: 20181108
  Receipt Date: 20181108
  Transmission Date: 20190205
  Serious: No
  Sender: FDA-Public Use
  Company Number: US-MYLANLABS-2018M1078472

PATIENT
  Age: 76 Year
  Sex: Male
  Weight: 122.4 kg

DRUGS (3)
  1. LIDOCAINE PATCH [Suspect]
     Active Substance: LIDOCAINE
     Dosage: 5 %, UNK
     Route: 003
  2. LIDOCAINE PATCH [Suspect]
     Active Substance: LIDOCAINE
     Dosage: UNK
  3. LIDOCAINE PATCH [Suspect]
     Active Substance: LIDOCAINE
     Indication: SPINAL PAIN
     Dosage: 5 %, UNK
     Route: 003

REACTIONS (6)
  - Wrong technique in product usage process [Unknown]
  - Product quality issue [Unknown]
  - Scratch [Unknown]
  - Off label use [Unknown]
  - Product adhesion issue [Unknown]
  - Wound [Unknown]
